FAERS Safety Report 7753666-2 (Version None)
Quarter: 2011Q3

REPORT INFORMATION
  Report Type: 
  Country: None (occurrence: None)
  Receive Date: 20110915
  Receipt Date: 20110915
  Transmission Date: 20111222
  Serious: Yes (Hospitalization)
  Sender: FDA-Public Use
  Company Number: None

PATIENT
  Age: 65 Year
  Sex: Female
  Weight: 158.3 kg

DRUGS (1)
  1. PRADAXA [Suspect]
     Dosage: 150MG
     Route: 048

REACTIONS (1)
  - HAEMORRHAGE [None]
